FAERS Safety Report 9085373 (Version 1)
Quarter: 2013Q1

REPORT INFORMATION
  Report Type: Spontaneous
  Country: FR (occurrence: FR)
  Receive Date: 20130131
  Receipt Date: 20130131
  Transmission Date: 20140127
  Serious: Yes (Hospitalization)
  Sender: FDA-Public Use
  Company Number: FR-B.I. PHARMACEUTICALS,INC./RIDGEFIELD-2013-FF-00258FF

PATIENT
  Age: 83 None
  Sex: Female

DRUGS (5)
  1. MICARDIS [Suspect]
     Route: 048
  2. TEMERIT [Suspect]
     Route: 048
  3. ZANIDIP [Suspect]
     Route: 048
  4. INEXIUM [Suspect]
     Route: 048
  5. ANAFRANIL [Suspect]
     Route: 048

REACTIONS (1)
  - Hyponatraemia [Not Recovered/Not Resolved]
